FAERS Safety Report 13134265 (Version 9)
Quarter: 2021Q2

REPORT INFORMATION
  Report Type: Spontaneous
  Country: US (occurrence: US)
  Receive Date: 20170120
  Receipt Date: 20210503
  Transmission Date: 20210716
  Serious: No
  Sender: FDA-Public Use
  Company Number: US-PFIZER INC-2017025879

PATIENT
  Age: 74 Year
  Sex: Female
  Weight: 88 kg

DRUGS (4)
  1. IBRANCE [Suspect]
     Active Substance: PALBOCICLIB
     Indication: BREAST CANCER FEMALE
     Dosage: 125 MG, CYCLIC (DAILY, DAY 1?21, 28 DAY?CYCLE)
     Route: 048
     Dates: start: 201612
  2. IBRANCE [Suspect]
     Active Substance: PALBOCICLIB
     Indication: BREAST CANCER METASTATIC
     Dosage: 125 MG, CYCLIC (DAILY, DAY 1?21, 28 DAY?CYCLE)
     Route: 048
     Dates: start: 201612
  3. XGEVA [Concomitant]
     Active Substance: DENOSUMAB
     Indication: BONE DISORDER
     Dosage: UNK, MONTHLY
  4. FASLODEX [Concomitant]
     Active Substance: FULVESTRANT
     Indication: NEOPLASM MALIGNANT
     Dosage: UNK

REACTIONS (8)
  - Stomatitis [Unknown]
  - Cough [Not Recovered/Not Resolved]
  - Malaise [Unknown]
  - White blood cell count decreased [Unknown]
  - Rhinorrhoea [Unknown]
  - Sneezing [Not Recovered/Not Resolved]
  - Fibromyalgia [Not Recovered/Not Resolved]
  - Pain [Unknown]

NARRATIVE: CASE EVENT DATE: 201612
